FAERS Safety Report 4880663-7 (Version None)
Quarter: 2006Q1

REPORT INFORMATION
  Report Type: 
  Country: None (occurrence: None)
  Receive Date: 20060113
  Receipt Date: 20050329
  Transmission Date: 20060701
  Serious: Yes (Hospitalization, Disabling)
  Sender: FDA-Public Use
  Company Number: US-MERCK-0503USA05272

PATIENT
  Age: 62 Year
  Sex: Female
  Weight: 136 kg

DRUGS (3)
  1. VIOXX [Suspect]
     Indication: ARTHRALGIA
     Route: 048
     Dates: start: 20001101, end: 20011019
  2. VIOXX [Suspect]
     Route: 048
     Dates: start: 20011101
  3. ACETAMINOPHEN [Concomitant]
     Route: 065

REACTIONS (5)
  - HAEMATOMA [None]
  - HYPERLIPIDAEMIA [None]
  - HYPOTENSION [None]
  - MYOCARDIAL INFARCTION [None]
  - THROMBOSIS [None]
